FAERS Safety Report 5566492-X (Version None)
Quarter: 2007Q4

REPORT INFORMATION
  Report Type: 
  Country: None (occurrence: None)
  Receive Date: 20071214
  Receipt Date: 20071204
  Transmission Date: 20080405
  Serious: Yes (Hospitalization)
  Sender: FDA-Public Use
  Company Number: FABR-12210

PATIENT
  Age: 38 Year
  Sex: Male
  Weight: 48.5 kg

DRUGS (6)
  1. FABRAZYME [Suspect]
     Indication: FABRY'S DISEASE
     Dosage: 70 MG Q2WKS IV
     Route: 042
     Dates: start: 20060307
  2. KARDEGIC [Suspect]
     Indication: CEREBROVASCULAR ACCIDENT
     Dosage: 160 MG QD PO
     Route: 048
     Dates: start: 20040701
  3. CLARITIN [Suspect]
     Indication: DERMATITIS ALLERGIC
     Dosage: 1 Q2WKS
  4. CLARITIN [Suspect]
     Indication: PREMEDICATION
     Dosage: 1 Q2WKS
  5. CLARITIN [Concomitant]
  6. KARDEGIC [Concomitant]

REACTIONS (7)
  - ALOPECIA [None]
  - DRUG HYPERSENSITIVITY [None]
  - HAIR COLOUR CHANGES [None]
  - HAIR DISORDER [None]
  - HAIR TEXTURE ABNORMAL [None]
  - INFUSION RELATED REACTION [None]
  - NO THERAPEUTIC RESPONSE [None]
